FAERS Safety Report 4778924-5 (Version None)
Quarter: 2005Q3

REPORT INFORMATION
  Report Type: 
  Country: None (occurrence: None)
  Receive Date: 20050926
  Receipt Date: 20030917
  Transmission Date: 20060218
  Serious: Yes (Hospitalization)
  Sender: FDA-Public Use
  Company Number: US-AMGEN-US048304

PATIENT
  Sex: Male
  Weight: 83.91 kg

DRUGS (4)
  1. ENBREL [Suspect]
     Indication: RHEUMATOID ARTHRITIS
     Route: 058
     Dates: start: 20030501, end: 20030818
  2. PREDNISONE [Concomitant]
     Dates: start: 20030301
  3. AZULFIDINE [Concomitant]
     Dates: start: 20030401
  4. WELLBUTRIN [Concomitant]
     Dates: start: 19980101

REACTIONS (1)
  - LUNG INFECTION [None]
